FAERS Safety Report 23792674 (Version 1)
Quarter: 2024Q2

REPORT INFORMATION
  Report Type: Spontaneous
  Country: TR (occurrence: TR)
  Receive Date: 20240429
  Receipt Date: 20240429
  Transmission Date: 20240716
  Serious: Yes (Hospitalization, Other)
  Sender: FDA-Public Use
  Company Number: TR-002147023-NVSC2024TR088333

PATIENT
  Age: 70 Year
  Sex: Male

DRUGS (2)
  1. TRILEPTAL [Suspect]
     Active Substance: OXCARBAZEPINE
     Indication: Epilepsy
     Dosage: 300 MG, QD
     Route: 065
  2. TRILEPTAL [Suspect]
     Active Substance: OXCARBAZEPINE
     Indication: Epilepsy
     Dosage: UNK
     Route: 065

REACTIONS (8)
  - Seizure [Unknown]
  - Syncope [Unknown]
  - Brain hypoxia [Unknown]
  - Dizziness [Unknown]
  - Limb discomfort [Unknown]
  - Muscular weakness [Unknown]
  - Blood pressure decreased [Unknown]
  - Product supply issue [Unknown]
